FAERS Safety Report 8948383 (Version 2)
Quarter: 2013Q1

REPORT INFORMATION
  Report Type: Spontaneous
  Country: IL (occurrence: IL)
  Receive Date: 20121206
  Receipt Date: 20130204
  Transmission Date: 20140127
  Serious: Yes (Other)
  Sender: FDA-Public Use
  Company Number: PHHY2011IL65500

PATIENT
  Age: 57 Year
  Sex: Male

DRUGS (5)
  1. SANDOSTATIN LAR [Suspect]
     Indication: CARCINOID TUMOUR
     Dosage: 30 MG, EVERY 10 DAYS
     Dates: start: 20070724
  2. SANDOSTATIN LAR [Suspect]
     Dosage: 30 MG, EVERY 10 DAYS
     Dates: start: 20120423
  3. SANDOSTATIN LAR [Suspect]
     Dosage: 30 MG, EVERY 2 WEEKS
     Dates: start: 20120502
  4. SANDOSTATIN LAR [Suspect]
     Dosage: 30 MG, EVERY 2 WEEKS
     Dates: start: 20121022
  5. SANDOSTATIN LAR [Suspect]
     Dosage: 30 MG, EVERY 3 WEEKS

REACTIONS (6)
  - Malignant neoplasm progression [Unknown]
  - General physical health deterioration [Unknown]
  - Blood chromogranin A increased [Unknown]
  - Hot flush [Unknown]
  - Dizziness [Unknown]
  - Liver function test abnormal [Unknown]
